FAERS Safety Report 6027275-X (Version None)
Quarter: 2009Q1

REPORT INFORMATION
  Report Type: 
  Country: None (occurrence: None)
  Receive Date: 20090102
  Receipt Date: 20090102
  Transmission Date: 20090719
  Serious: Yes (Other)
  Sender: FDA-Public Use
  Company Number: None

PATIENT
  Age: 38 Year
  Sex: Female
  Weight: 81.6475 kg

DRUGS (2)
  1. VENTOLIN HFA [Suspect]
     Indication: ASTHMA
     Dosage: 200 METERED INHALATIONS 18 G
     Route: 055
     Dates: start: 20081001, end: 20081028
  2. PROAIR HFA [Suspect]
     Indication: ASTHMA
     Dosage: 200 METERED INHALATIONS 8.5G
     Route: 055
     Dates: start: 20081101, end: 20081129

REACTIONS (5)
  - ANXIETY [None]
  - DRUG EFFECT DECREASED [None]
  - DYSPNOEA [None]
  - PRODUCT QUALITY ISSUE [None]
  - WHEEZING [None]
